FAERS Safety Report 9710815 (Version 2)
Quarter: 2013Q4

REPORT INFORMATION
  Report Type: Spontaneous
  Country: US (occurrence: US)
  Receive Date: 20131126
  Receipt Date: 20131126
  Transmission Date: 20140711
  Serious: No
  Sender: FDA-Public Use
  Company Number: US-BRISTOL-MYERS SQUIBB COMPANY-19010727

PATIENT
  Age: 56 Year
  Sex: Female

DRUGS (3)
  1. BYDUREON [Suspect]
     Indication: DIABETES MELLITUS
     Route: 058
     Dates: start: 20130524, end: 20130617
  2. INSULIN [Suspect]
  3. ASPIRIN [Concomitant]

REACTIONS (4)
  - Injection site nodule [Recovering/Resolving]
  - Injection site hypersensitivity [Recovering/Resolving]
  - Injection site bruising [Recovering/Resolving]
  - Injection site pain [Recovering/Resolving]
